FAERS Safety Report 18728227 (Version 2)
Quarter: 2021Q1

REPORT INFORMATION
  Report Type: Spontaneous
  Country: US (occurrence: US)
  Receive Date: 20210111
  Receipt Date: 20210211
  Transmission Date: 20210419
  Serious: Yes (Other)
  Sender: FDA-Public Use
  Company Number: US-BEH-2021127068

PATIENT
  Sex: Female

DRUGS (2)
  1. HUMATE?P [Suspect]
     Active Substance: HUMAN COAGULATION FACTOR VIII/VON WILLEBRAND FACTOR COMPLEX
     Indication: VON WILLEBRAND^S DISEASE
     Dosage: 3000 INTERNATIONAL UNIT, PRN
     Route: 042
     Dates: start: 202008
  2. HUMATE?P [Suspect]
     Active Substance: HUMAN COAGULATION FACTOR VIII/VON WILLEBRAND FACTOR COMPLEX
     Indication: VON WILLEBRAND^S DISEASE
     Dosage: 3000 INTERNATIONAL UNIT, PRN
     Route: 042
     Dates: start: 202008

REACTIONS (1)
  - Benign breast neoplasm [Unknown]
